FAERS Safety Report 4762810-0 (Version None)
Quarter: 2005Q3

REPORT INFORMATION
  Report Type: 
  Country: None (occurrence: None)
  Receive Date: 20050907
  Receipt Date: 20050830
  Transmission Date: 20060218
  Serious: Yes (Hospitalization)
  Sender: FDA-Public Use
  Company Number: PHBS2005EE12837

PATIENT
  Age: 15 Year
  Sex: Male

DRUGS (4)
  1. CYCLOSPORINE [Suspect]
     Indication: NEPHROTIC SYNDROME
  2. CORTICOSTEROIDS [Concomitant]
  3. CYCLOPHOSPHAMIDE [Concomitant]
  4. LEVAMISOLE [Concomitant]

REACTIONS (21)
  - ASCITES [None]
  - BLOOD FIBRINOGEN INCREASED [None]
  - GENERALISED OEDEMA [None]
  - HEADACHE [None]
  - HYPERCHOLESTEROLAEMIA [None]
  - HYPOALBUMINAEMIA [None]
  - INTRACRANIAL VENOUS SINUS THROMBOSIS [None]
  - JUGULAR VEIN THROMBOSIS [None]
  - MENINGISM [None]
  - OLIGURIA [None]
  - PAPILLOEDEMA [None]
  - PARESIS CRANIAL NERVE [None]
  - PHOTOPHOBIA [None]
  - POLYURIA [None]
  - PROTEINURIA [None]
  - PROTHROMBIN TIME SHORTENED [None]
  - SUPERIOR SAGITTAL SINUS THROMBOSIS [None]
  - TRANSVERSE SINUS THROMBOSIS [None]
  - VENOUS THROMBOSIS [None]
  - VOMITING [None]
  - WEIGHT INCREASED [None]
